FAERS Safety Report 5291956-6 (Version None)
Quarter: 2007Q2

REPORT INFORMATION
  Report Type: 
  Country: None (occurrence: None)
  Receive Date: 20070404
  Receipt Date: 20070320
  Transmission Date: 20071010
  Serious: Yes (Other)
  Sender: FDA-Public Use
  Company Number: 230007M07DEU

PATIENT
  Sex: Female
  Weight: 110 kg

DRUGS (1)
  1. REBIF [Suspect]
     Indication: MULTIPLE SCLEROSIS
     Dosage: 44 MCG, 3 IN 1 WEEKS, SUBCUTANEOUS
     Route: 058
     Dates: start: 20041020

REACTIONS (3)
  - INJECTION SITE ABSCESS [None]
  - INJECTION SITE NECROSIS [None]
  - SKIN INFECTION [None]
